FAERS Safety Report 15087848 (Version 1)
Quarter: 2018Q2

REPORT INFORMATION
  Report Type: Spontaneous
  Country: CH (occurrence: CH)
  Receive Date: 20180629
  Receipt Date: 20180629
  Transmission Date: 20180711
  Serious: Yes (Other)
  Sender: FDA-Public Use
  Company Number: CH-ABBVIE-18K-151-2365317-00

PATIENT
  Age: 47 Year
  Sex: Female

DRUGS (2)
  1. HUMIRA [Suspect]
     Active Substance: ADALIMUMAB
     Indication: HIDRADENITIS
     Route: 058
     Dates: start: 201707, end: 201805
  2. HUMIRA [Suspect]
     Active Substance: ADALIMUMAB
     Route: 058
     Dates: start: 2018

REACTIONS (7)
  - Mean cell volume increased [Unknown]
  - Haematocrit increased [Unknown]
  - White blood cell count increased [Unknown]
  - Red cell distribution width increased [Recovered/Resolved]
  - Psoriasis [Recovering/Resolving]
  - Proctitis [Recovering/Resolving]
  - Mean cell haemoglobin [Recovered/Resolved]

NARRATIVE: CASE EVENT DATE: 20170815
